FAERS Safety Report 5911624-4 (Version None)
Quarter: 2008Q4

REPORT INFORMATION
  Report Type: 
  Country: None (occurrence: None)
  Receive Date: 20081003
  Receipt Date: 20080922
  Transmission Date: 20090506
  Serious: Yes (Hospitalization, Other)
  Sender: FDA-Public Use
  Company Number: 239025J08USA

PATIENT
  Age: 35 Year
  Sex: Female

DRUGS (3)
  1. REBIF [Suspect]
     Indication: MULTIPLE SCLEROSIS
     Dosage: 44 MCG, 3 IN 1 WEEKS, SUBCUTANEOUS
     Route: 058
     Dates: start: 20031020
  2. ADVIL [Concomitant]
  3. ACETAMINOPHEN [Concomitant]

REACTIONS (4)
  - CYST [None]
  - HEADACHE [None]
  - INTRACRANIAL ANEURYSM [None]
  - PERONEAL NERVE PALSY [None]
